FAERS Safety Report 11697468 (Version 2)
Quarter: 2016Q2

REPORT INFORMATION
  Report Type: Spontaneous
  Country: US (occurrence: US)
  Receive Date: 20151104
  Receipt Date: 20160503
  Transmission Date: 20160815
  Serious: No
  Sender: FDA-Public Use
  Company Number: US-PFIZER INC-2015356415

PATIENT
  Age: 77 Year
  Sex: Female

DRUGS (23)
  1. IBRANCE [Suspect]
     Active Substance: PALBOCICLIB
     Dosage: UNK
  2. FEMARA [Suspect]
     Active Substance: LETROZOLE
     Dosage: UNK
  3. CALCIUM [Concomitant]
     Active Substance: CALCIUM
     Dosage: UNK
  4. FISH OIL [Concomitant]
     Active Substance: FISH OIL
     Dosage: UNK
  5. COENZYME Q10 [Concomitant]
     Active Substance: UBIDECARENONE
     Dosage: UNK
  6. BIOTIN [Concomitant]
     Active Substance: BIOTIN
     Dosage: UNK, (5000)
  7. GABAPENTIN. [Concomitant]
     Active Substance: GABAPENTIN
     Dosage: UNK
  8. VITAMIN B12 [Concomitant]
     Active Substance: CYANOCOBALAMIN
     Dosage: UNK
  9. MAGNESIUM [Concomitant]
     Active Substance: MAGNESIUM
     Dosage: UNK
  10. VITAMIN D3 [Concomitant]
     Active Substance: CHOLECALCIFEROL
     Dosage: UNK
  11. IBRANCE [Suspect]
     Active Substance: PALBOCICLIB
     Dosage: 75 MG, CYCLIC [X21]
     Dates: start: 20150826
  12. LEVOTHYROXINE SODIUM. [Concomitant]
     Active Substance: LEVOTHYROXINE SODIUM
     Dosage: UNK
  13. ABC PLUS [Concomitant]
     Active Substance: VITAMINS
     Dosage: UNK
  14. B50 COMPLEX TR [Concomitant]
     Dosage: UNK
  15. CLARITIN [Concomitant]
     Active Substance: LORATADINE
     Dosage: UNK
  16. ALOE VERA [Concomitant]
     Active Substance: ALOE VERA LEAF
     Dosage: UNK
  17. CRANBERRY. [Concomitant]
     Active Substance: CRANBERRY
     Dosage: UNK
  18. XGEVA [Concomitant]
     Active Substance: DENOSUMAB
     Dosage: UNK
  19. ZINC CITRATE [Concomitant]
     Active Substance: ZINC CITRATE
     Dosage: UNK
  20. GLUCOSAMINE [Concomitant]
     Active Substance: GLUCOSAMINE
     Dosage: UNK
  21. IODINE. [Concomitant]
     Active Substance: IODINE
     Dosage: UNK
  22. VITAMIN C [Concomitant]
     Active Substance: ASCORBIC ACID
     Dosage: UNK
  23. VITAMIN D [Concomitant]
     Active Substance: CHOLECALCIFEROL
     Dosage: UNK

REACTIONS (9)
  - Palpitations [Unknown]
  - White blood cell count decreased [Unknown]
  - Pain [Unknown]
  - Abdominal pain upper [Unknown]
  - Hypotension [Unknown]
  - Diarrhoea [Unknown]
  - Decreased appetite [Unknown]
  - Constipation [Unknown]
  - Flatulence [Unknown]

NARRATIVE: CASE EVENT DATE: 20160422
